FAERS Safety Report 8107501-3 (Version None)
Quarter: 2012Q1

REPORT INFORMATION
  Report Type: 
  Country: None (occurrence: None)
  Receive Date: 20120202
  Receipt Date: 20120124
  Transmission Date: 20120608
  Serious: Yes (Life-Threatening, Hospitalization)
  Sender: FDA-Public Use
  Company Number: DE-MPIJNJ-2012-00535

PATIENT

DRUGS (7)
  1. PREDNISOLONE [Concomitant]
     Indication: MULTIPLE MYELOMA
     Dosage: UNK
     Dates: start: 20110419, end: 20111122
  2. VELCADE [Suspect]
     Indication: MULTIPLE MYELOMA
     Dosage: UNK
     Route: 065
     Dates: start: 20110419, end: 20111122
  3. MELPHALAN HYDROCHLORIDE [Concomitant]
     Indication: MULTIPLE MYELOMA
     Dosage: UNK
     Dates: start: 20110419, end: 20111122
  4. DIPYRONE TAB [Concomitant]
     Dosage: UNK
     Dates: start: 20110620
  5. VOMEX A                            /00019501/ [Concomitant]
     Dosage: UNK
     Dates: start: 20110419
  6. EPOGEN [Concomitant]
     Dosage: UNK
     Dates: start: 20110503
  7. DEXAHEXAL                          /00016010/ [Concomitant]
     Dosage: UNK
     Dates: start: 20110419

REACTIONS (1)
  - FEBRILE NEUTROPENIA [None]
